FAERS Safety Report 5792042-9 (Version None)
Quarter: 2008Q2

REPORT INFORMATION
  Report Type: 
  Country: None (occurrence: None)
  Receive Date: 20080626
  Receipt Date: 20080620
  Transmission Date: 20081010
  Serious: Yes (Other)
  Sender: FDA-Public Use
  Company Number: PHHY2008AR11509

PATIENT
  Sex: Male

DRUGS (3)
  1. EXFORGE [Suspect]
     Indication: HYPERTENSION
     Dosage: 160 MG
     Dates: start: 20080415, end: 20080430
  2. CORBIS D [Concomitant]
  3. LASILACTON [Concomitant]

REACTIONS (4)
  - ABASIA [None]
  - CONDITION AGGRAVATED [None]
  - HAEMATOMA [None]
  - OEDEMA PERIPHERAL [None]
